FAERS Safety Report 4339545-1 (Version None)
Quarter: 2004Q1

REPORT INFORMATION
  Report Type: 
  Country: None (occurrence: None)
  Receive Date: 20040329
  Receipt Date: 20040223
  Transmission Date: 20041129
  Serious: No
  Sender: FDA-Public Use
  Company Number: 04P-163-0251138-00

PATIENT
  Age: 49 Year
  Sex: Female

DRUGS (13)
  1. HUMIRA [Suspect]
     Indication: RHEUMATOID ARTHRITIS
     Dosage: 40, SUBCUTANEOUS
     Route: 058
     Dates: start: 20030101
  2. DILANTIL [Concomitant]
  3. CARBAMAZEPINE [Concomitant]
  4. LEVETIRACETAM [Concomitant]
  5. NOVAL [Concomitant]
  6. SULFALALAZIN [Concomitant]
  7. CELECOXIB [Concomitant]
  8. ALBUTEROL SULFATE [Concomitant]
  9. LORALADINE [Concomitant]
  10. TOPIRMATE [Concomitant]
  11. PLAVIX [Concomitant]
  12. ASPIRIN [Concomitant]
  13. LAMOTRIGINE [Concomitant]

REACTIONS (1)
  - ASTHMA [None]
